FAERS Safety Report 10174737 (Version 1)
Quarter: 2014Q2

REPORT INFORMATION
  Report Type: Spontaneous
  Country: US (occurrence: None)
  Receive Date: 20140416
  Receipt Date: 20140416
  Transmission Date: 20141212
  Serious: No
  Sender: FDA-Public Use
  Company Number: 163-POMAL-14015245

PATIENT
  Age: 64 Year
  Sex: Female
  Weight: 91.63 kg

DRUGS (13)
  1. POMALYST [Suspect]
     Indication: PLASMA CELL MYELOMA
     Dosage: 2 MG, EVERY OTHER DAY FOR 21 DAYS  12/2013 - ONGOING THERAPY
     Dates: start: 201312
  2. DEXAMETHASONE  (DEXAMETHASONE)  (UNKNOWN) [Concomitant]
  3. FENTANYL (FENTANYL) (UNKNOWN) (FENTANYL) [Concomitant]
  4. HUMALOG (INSULIN  LISPRO) [Concomitant]
  5. LANTUS SOLOSTAR (INSULIN GLARGINE) [Concomitant]
  6. LEVOFLOXACIN (LEVOFLOXACIN) [Concomitant]
  7. METFORMIN HCL  (METFORMIN HYDROCHLORIDE) [Concomitant]
  8. POTASSIUM CHLORIDE (POTASSIUM  CHLORIDE) [Concomitant]
  9. VALACYCLOVIR (VALACICLOVIR HYDROCHLORIDE) [Concomitant]
  10. PRILOSEC (OMEPRAZOLE) [Concomitant]
  11. ASPIRIN (ACETYLSALICYLIC ACID) [Concomitant]
  12. CYCLOPHOSPHAMIDE (CYCLOPHOSPHAMIDE) [Concomitant]
  13. VITAMIN D (ERGOCALCIFEROL) [Concomitant]

REACTIONS (2)
  - Localised infection [None]
  - Infusion site extravasation [None]
